FAERS Safety Report 13451640 (Version 1)
Quarter: 2017Q2

REPORT INFORMATION
  Report Type: Spontaneous
  Country: US (occurrence: US)
  Receive Date: 20170418
  Receipt Date: 20170418
  Transmission Date: 20170830
  Serious: No
  Sender: FDA-Public Use
  Company Number: US-PFIZER INC-2017160826

PATIENT

DRUGS (2)
  1. CELEBREX [Suspect]
     Active Substance: CELECOXIB
     Dosage: UNK, (TOOK 3 ABOUT QUARTERS OF CAPSULE)
  2. CELEBREX [Suspect]
     Active Substance: CELECOXIB
     Dosage: UNK, (TOOK THE OTHER QUARTER OF THE CAPSULE)

REACTIONS (3)
  - Wrong technique in product usage process [Unknown]
  - Tinnitus [Not Recovered/Not Resolved]
  - Ear discomfort [Not Recovered/Not Resolved]
